FAERS Safety Report 8452254 (Version 4)
Quarter: 2013Q3

REPORT INFORMATION
  Report Type: Report from Study
  Country: None (occurrence: DE)
  Receive Date: 20120311
  Receipt Date: 20130819
  Transmission Date: 20140515
  Serious: Yes (Hospitalization)
  Sender: FDA-Public Use
  Company Number: DE-TEVA-326320GER

PATIENT
  Age: 52 Year
  Sex: Female
  Weight: 94 kg

DRUGS (11)
  1. MYOCET [Suspect]
     Indication: BREAST CANCER
     Route: 042
     Dates: start: 20111123
  2. PACLITAXEL [Suspect]
     Indication: BREAST CANCER
     Route: 042
     Dates: start: 20111123
  3. CARBOPLATIN [Suspect]
     Indication: BREAST CANCER
     Route: 042
     Dates: start: 20111123
  4. BEVACIZUMAB [Suspect]
     Indication: BREAST CANCER
     Route: 042
     Dates: start: 20111123
  5. ERYTHROPOIETIN [Concomitant]
     Dates: start: 20120208
  6. APREPITANT [Concomitant]
     Dates: start: 20120125
  7. ONDANSETRON [Concomitant]
     Dates: start: 20111214
  8. PASPERTIN [Concomitant]
     Dates: start: 20111214
  9. LENOGRASTIM [Concomitant]
     Dates: start: 20120113
  10. DIMENHYDRINATE [Concomitant]
     Dates: start: 20120125
  11. RAMIPRIL [Concomitant]
     Dates: start: 201201

REACTIONS (1)
  - Venous thrombosis limb [Recovered/Resolved]
